FAERS Safety Report 9605190 (Version 2)
Quarter: 2013Q4

REPORT INFORMATION
  Report Type: Spontaneous
  Country: US (occurrence: US)
  Receive Date: 20131008
  Receipt Date: 20131029
  Transmission Date: 20140711
  Serious: Yes (Other)
  Sender: FDA-Public Use
  Company Number: US-PFIZER INC-2013283724

PATIENT
  Age: 63 Year
  Sex: Female
  Weight: 39 kg

DRUGS (5)
  1. ZOLOFT [Suspect]
     Indication: DEPRESSION
     Dosage: 100 MG, DAILY
     Route: 048
     Dates: start: 2012, end: 201309
  2. ZOLOFT [Suspect]
     Dosage: 150 MG (1 AND 1/2 TABLETS), DAILY
     Route: 048
     Dates: start: 201309
  3. PRAVASTATIN SODIUM [Suspect]
     Indication: BLOOD CHOLESTEROL INCREASED
     Dosage: UNK
  4. LOPRESSOR [Concomitant]
     Indication: HYPERTENSION
     Dosage: 7.5 MG (SPLIT 15 MG TABLET), 2X/DAY
     Route: 048
  5. CRESTOR [Concomitant]
     Indication: BLOOD CHOLESTEROL INCREASED
     Dosage: UNK

REACTIONS (3)
  - Aneurysm [Unknown]
  - Depression [Unknown]
  - Pain in extremity [Unknown]
